FAERS Safety Report 10260033 (Version 3)
Quarter: 2014Q3

REPORT INFORMATION
  Report Type: Spontaneous
  Country: US (occurrence: US)
  Receive Date: 20140625
  Receipt Date: 20140827
  Transmission Date: 20150326
  Serious: Yes (Hospitalization, Other)
  Sender: FDA-Public Use
  Company Number: PHHY2014US067089

PATIENT
  Sex: Female

DRUGS (28)
  1. LIORESAL [Suspect]
     Active Substance: BACLOFEN
     Dosage: 596.63 UG (500MCG/ML), DAILY
     Route: 037
     Dates: start: 20140425
  2. ABILIFY [Suspect]
     Active Substance: ARIPIPRAZOLE
     Dosage: 2 MG, UNK
  3. LIORESAL [Suspect]
     Active Substance: BACLOFEN
     Dosage: 200.29 UG (500MCG/ML), DAILY
     Route: 037
     Dates: start: 20140210
  4. LIORESAL [Suspect]
     Active Substance: BACLOFEN
     Dosage: 317.5 UG (500MCG/ML), DAILY
     Route: 037
     Dates: start: 20140314
  5. ARICEPT [Suspect]
     Active Substance: DONEPEZIL HYDROCHLORIDE
     Dosage: 1 DF (1 TABLET ONCE DAILY AS NEEDED FOR 30 DAYS), PRN
     Route: 048
  6. LIORESAL [Suspect]
     Active Substance: BACLOFEN
     Dosage: 360.38 UG (500MCG/ML), DAILY
     Route: 037
     Dates: start: 20140325
  7. LIORESAL [Suspect]
     Active Substance: BACLOFEN
     Dosage: 497.45 UG (500MCG/ML), DAILY
     Route: 037
     Dates: start: 20140411
  8. LIORESAL [Suspect]
     Active Substance: BACLOFEN
     Dosage: 715.53 UG (500MCG/ML), DAILY
     Route: 037
     Dates: start: 20140502
  9. LIORESAL [Suspect]
     Active Substance: BACLOFEN
     Dosage: 1031.3 UG (500MCG/ML), DAILY
     Route: 037
     Dates: start: 20140522
  10. ACETAMINOPHEN (PARACETAMOL), CAFFEINE [Suspect]
     Active Substance: ACETAMINOPHEN\CAFFEINE
     Dosage: 2 DF (2 TABLETS), UNK
     Route: 048
  11. PERCOCET [Suspect]
     Active Substance: ACETAMINOPHEN\OXYCODONE HYDROCHLORIDE
     Dosage: 2 DF (2 TABLETS OF 10MG/325MG), BID
     Route: 048
  12. LIORESAL [Suspect]
     Active Substance: BACLOFEN
     Dosage: 150.07 UG (500MCG/ML), DAILY
     Route: 037
     Dates: start: 20140127
  13. LIORESAL [Suspect]
     Active Substance: BACLOFEN
     Dosage: 858.63 UG (500MCG/ML), DAILY
     Route: 037
     Dates: start: 20140516
  14. LIORESAL [Suspect]
     Active Substance: BACLOFEN
     Dosage: 199.9 UG, DAILY
     Route: 037
     Dates: start: 20140611
  15. VALACICLOVIR [Suspect]
     Active Substance: VALACYCLOVIR HYDROCHLORIDE
     Dosage: 1 DF (1 TABLET), QD
     Route: 048
  16. AMITIZA [Suspect]
     Active Substance: LUBIPROSTONE
     Dosage: 1 DF (1 CAPSULE ONCE DAILY FOR 30 DAYS), PRN
     Route: 048
  17. LIORESAL [Suspect]
     Active Substance: BACLOFEN
     Dosage: 220.41 UG (500MCG/ML), DAILY
     Route: 037
     Dates: start: 20140225
  18. LIORESAL [Suspect]
     Active Substance: BACLOFEN
     Dosage: 175.7 UG PER DAY
     Route: 037
  19. BACLOFEN. [Suspect]
     Active Substance: BACLOFEN
     Indication: MUSCULOSKELETAL STIFFNESS
     Dosage: 2 DF (1-2 TABLETS), QID
     Route: 048
  20. LORATADINE. [Suspect]
     Active Substance: LORATADINE
     Dosage: 1 DF, UNK
     Route: 048
  21. NEURONTIN [Suspect]
     Active Substance: GABAPENTIN
     Dosage: 1 DF (1 CAPSULE), BID
     Route: 048
  22. LIORESAL [Suspect]
     Active Substance: BACLOFEN
     Indication: MUSCLE SPASTICITY
     Dosage: 99.94 UG (500MCG/ML), DAILY
     Route: 037
     Dates: start: 20140124
  23. LIORESAL [Suspect]
     Active Substance: BACLOFEN
     Dosage: 264.73 UG (500MCG/ML), DAILY
     Route: 037
     Dates: start: 20140304
  24. LIORESAL [Suspect]
     Active Substance: BACLOFEN
     Dosage: 414.02 UG (500MCG/ML), DAILY
     Route: 037
     Dates: start: 20140404
  25. LEVOTHYROXINE [Suspect]
     Active Substance: LEVOTHYROXINE
     Dosage: UNK UKN, UNK
  26. PROZAC [Suspect]
     Active Substance: FLUOXETINE HYDROCHLORIDE
     Dosage: UNK UKN, UNK
  27. TYSABRI [Suspect]
     Active Substance: NATALIZUMAB
     Dosage: UNK UKN, UNK
     Route: 042
  28. LORATADINE. [Suspect]
     Active Substance: LORATADINE
     Dosage: 1 DF, UNK
     Route: 048

REACTIONS (5)
  - Muscle spasticity [Recovered/Resolved]
  - No therapeutic response [Recovered/Resolved]
  - Pain in extremity [Recovered/Resolved]
  - Musculoskeletal stiffness [Recovered/Resolved]
  - Therapeutic response decreased [Recovered/Resolved]
